FAERS Safety Report 9243369 (Version 1)
Quarter: 2013Q2

REPORT INFORMATION
  Report Type: Spontaneous
  Country: NL (occurrence: NL)
  Receive Date: 20130420
  Receipt Date: 20130420
  Transmission Date: 20140414
  Serious: Yes (Death)
  Sender: FDA-Public Use
  Company Number: NL-B.I. PHARMACEUTICALS,INC./RIDGEFIELD-2013-NL-00312NL

PATIENT
  Sex: Female

DRUGS (2)
  1. SPIRIVA [Suspect]
  2. SPIRIVA [Suspect]

REACTIONS (1)
  - Death [Fatal]
